FAERS Safety Report 6463908-1 (Version None)
Quarter: 2009Q4

REPORT INFORMATION
  Report Type: 
  Country: None (occurrence: None)
  Receive Date: 20091201
  Receipt Date: 20090717
  Transmission Date: 20100525
  Serious: No
  Sender: FDA-Public Use
  Company Number: US-BAYER-200926905NA

PATIENT
  Age: 67 Year
  Sex: Female
  Weight: 54 kg

DRUGS (1)
  1. MAGNEVIST [Suspect]
     Indication: NUCLEAR MAGNETIC RESONANCE IMAGING
     Dosage: TOTAL DAILY DOSE: 10 ML  UNIT DOSE: 20 ML
     Route: 042
     Dates: start: 20090605, end: 20090605

REACTIONS (14)
  - ABDOMINAL PAIN [None]
  - ASTHENIA [None]
  - BURNING SENSATION [None]
  - DIARRHOEA [None]
  - DIZZINESS [None]
  - DRY EYE [None]
  - FEELING ABNORMAL [None]
  - HEADACHE [None]
  - MALAISE [None]
  - NASAL DRYNESS [None]
  - NERVOUSNESS [None]
  - PRURITUS [None]
  - VASODILATATION [None]
  - VEIN DISCOLOURATION [None]
